FAERS Safety Report 20458207 (Version 1)
Quarter: 2022Q1

REPORT INFORMATION
  Report Type: Spontaneous
  Country: PT (occurrence: PT)
  Receive Date: 20220211
  Receipt Date: 20220211
  Transmission Date: 20220423
  Serious: Yes (Hospitalization, Other)
  Sender: FDA-Public Use
  Company Number: None

PATIENT
  Age: 85 Year
  Sex: Female

DRUGS (6)
  1. FUROSEMIDE [Suspect]
     Active Substance: FUROSEMIDE
     Indication: Hypertension
     Dosage: UNK
     Route: 065
  2. FUROSEMIDE [Suspect]
     Active Substance: FUROSEMIDE
     Indication: Atrial fibrillation
  3. APIXABAN [Concomitant]
     Active Substance: APIXABAN
     Indication: Atrial fibrillation
     Dosage: UNK
     Route: 065
  4. APIXABAN [Concomitant]
     Active Substance: APIXABAN
     Indication: Hypertension
  5. BISOPROLOL [Concomitant]
     Active Substance: BISOPROLOL
     Indication: Atrial fibrillation
     Dosage: UNK
     Route: 065
  6. BISOPROLOL [Concomitant]
     Active Substance: BISOPROLOL
     Indication: Hypertension

REACTIONS (7)
  - Hypertrophic cardiomyopathy [Recovered/Resolved]
  - Condition aggravated [Recovered/Resolved]
  - Syncope [Recovered/Resolved]
  - Electrocardiogram ST segment elevation [Recovered/Resolved]
  - Hypothermia [Recovered/Resolved]
  - Dehydration [Recovered/Resolved]
  - Off label use [Unknown]
